FAERS Safety Report 6820836-7 (Version None)
Quarter: 2010Q3

REPORT INFORMATION
  Report Type: 
  Country: None (occurrence: None)
  Receive Date: 20100707
  Receipt Date: 20070712
  Transmission Date: 20110219
  Serious: No
  Sender: FDA-Public Use
  Company Number: US-PFIZER INC-2007060659

PATIENT
  Sex: Female

DRUGS (2)
  1. SERTRALINE [Suspect]
     Route: 048
  2. SUDAFED S.A. [Suspect]
     Route: 048
     Dates: start: 20070621, end: 20070621

REACTIONS (2)
  - EYE DISORDER [None]
  - MUSCLE SPASMS [None]
